FAERS Safety Report 8182759-3 (Version None)
Quarter: 2012Q1

REPORT INFORMATION
  Report Type: 
  Country: None (occurrence: None)
  Receive Date: 20120305
  Receipt Date: 20120224
  Transmission Date: 20120608
  Serious: Yes (Other)
  Sender: FDA-Public Use
  Company Number: US-BAYER-2011-076165

PATIENT
  Age: 22 Year
  Sex: Female
  Weight: 72 kg

DRUGS (11)
  1. YASMIN [Suspect]
     Indication: PREMENSTRUAL SYNDROME
     Dosage: UNK
     Dates: start: 20060401, end: 20060801
  2. LISINOPRIL [Concomitant]
  3. YAZ [Suspect]
     Indication: PREMENSTRUAL SYNDROME
     Dosage: UNK
     Dates: start: 20060901, end: 20100501
  4. TRIAMTEREN HCT [Concomitant]
  5. EFFEXOR XR [Concomitant]
  6. SYNTHROID [Concomitant]
  7. LISINOPRIL AND HYDROCHLOROTHIAZIDE [Concomitant]
  8. XYZAL [Concomitant]
  9. ASCORBIC ACID [Concomitant]
  10. ZYRTEC [Concomitant]
  11. WELLBUTRIN [Concomitant]

REACTIONS (4)
  - CHOLELITHIASIS [None]
  - PAIN [None]
  - CHOLECYSTITIS [None]
  - CHOLECYSTITIS CHRONIC [None]
